FAERS Safety Report 26060157 (Version 1)
Quarter: 2025Q4

REPORT INFORMATION
  Report Type: Spontaneous
  Country: US (occurrence: US)
  Receive Date: 20251118
  Receipt Date: 20251118
  Transmission Date: 20260118
  Serious: Yes (Life-Threatening, Hospitalization)
  Sender: MYLAN
  Company Number: US-MYLANLABS-2025M1096947

PATIENT
  Age: 8 Decade
  Sex: Female

DRUGS (4)
  1. TRANEXAMIC ACID [Suspect]
     Active Substance: TRANEXAMIC ACID
     Indication: Prophylaxis
     Dosage: UNK, APPROXIMATELY 200MG
  2. TRANEXAMIC ACID [Suspect]
     Active Substance: TRANEXAMIC ACID
     Dosage: UNK, APPROXIMATELY 200MG
     Route: 037
  3. TRANEXAMIC ACID [Suspect]
     Active Substance: TRANEXAMIC ACID
     Dosage: UNK, APPROXIMATELY 200MG
     Route: 037
  4. TRANEXAMIC ACID [Suspect]
     Active Substance: TRANEXAMIC ACID
     Dosage: UNK, APPROXIMATELY 200MG

REACTIONS (3)
  - Status epilepticus [Recovered/Resolved]
  - Tachycardia [Recovered/Resolved]
  - Incorrect route of product administration [Recovered/Resolved]
